FAERS Safety Report 8596927-X (Version None)
Quarter: 2012Q3

REPORT INFORMATION
  Report Type: 
  Country: None (occurrence: None)
  Receive Date: 20120815
  Receipt Date: 20120809
  Transmission Date: 20120928
  Serious: Yes (Other)
  Sender: FDA-Public Use
  Company Number: US-BAYER-2012-081946

PATIENT
  Age: 32 Year
  Sex: Female

DRUGS (1)
  1. MIRENA [Suspect]
     Indication: CONTRACEPTION
     Dosage: 20 MCG/24HR, UNK
     Route: 015
     Dates: start: 20110501

REACTIONS (8)
  - PARAESTHESIA [None]
  - MUSCLE SPASMS [None]
  - WEIGHT INCREASED [None]
  - PALPITATIONS [None]
  - MEMORY IMPAIRMENT [None]
  - HYPOPNOEA [None]
  - HYPOAESTHESIA [None]
  - MENTAL IMPAIRMENT [None]
